FAERS Safety Report 7496239-1 (Version None)
Quarter: 2011Q2

REPORT INFORMATION
  Report Type: 
  Country: None (occurrence: None)
  Receive Date: 20110523
  Receipt Date: 20110517
  Transmission Date: 20111010
  Serious: Yes (Death)
  Sender: FDA-Public Use
  Company Number: PHHY2011SV43163

PATIENT
  Age: 82 Year
  Sex: Male

DRUGS (1)
  1. EXELON [Suspect]
     Dosage: 4.6 MG/24 HOURS
     Route: 062

REACTIONS (1)
  - DEATH [None]
